FAERS Safety Report 4735051-0 (Version None)
Quarter: 2005Q3

REPORT INFORMATION
  Report Type: 
  Country: None (occurrence: None)
  Receive Date: 20050804
  Receipt Date: 20050726
  Transmission Date: 20060218
  Serious: Yes (Death, Hospitalization)
  Sender: FDA-Public Use
  Company Number: 215718

PATIENT
  Age: 66 Year
  Sex: Female

DRUGS (7)
  1. RAPTIVA [Suspect]
     Indication: PSORIASIS
     Dosage: MG, 1/WEEK
     Dates: start: 20040201
  2. PREDNISONE [Concomitant]
  3. ALLOPURINOL [Concomitant]
  4. PREVACID [Concomitant]
  5. ZESTRIL [Concomitant]
  6. ZIAC [Concomitant]
  7. VALTREX [Concomitant]

REACTIONS (18)
  - ABDOMINAL ABSCESS [None]
  - ANAEMIA [None]
  - AORTIC THROMBOSIS [None]
  - ARTERIAL THROMBOSIS LIMB [None]
  - ATELECTASIS [None]
  - ENTEROCUTANEOUS FISTULA [None]
  - HEPATITIS [None]
  - INTESTINAL FISTULA [None]
  - INTESTINAL ISCHAEMIA [None]
  - PERITONITIS [None]
  - PLEURAL EFFUSION [None]
  - POST PROCEDURAL COMPLICATION [None]
  - RENAL FAILURE ACUTE [None]
  - RENAL INFARCT [None]
  - RESPIRATORY FAILURE [None]
  - SPLENIC INFARCTION [None]
  - THROMBOCYTOPENIA [None]
  - VENOUS INSUFFICIENCY [None]
